FAERS Safety Report 16213096 (Version 3)
Quarter: 2019Q3

REPORT INFORMATION
  Report Type: Report from Study
  Country: CA (occurrence: CA)
  Receive Date: 20190418
  Receipt Date: 20190717
  Transmission Date: 20191004
  Serious: Yes (Other)
  Sender: FDA-Public Use
  Company Number: CA-JNJFOC-20190319266

PATIENT
  Age: 12 Year
  Sex: Female
  Weight: 52 kg

DRUGS (2)
  1. REMICADE [Suspect]
     Active Substance: INFLIXIMAB
     Route: 042
     Dates: start: 20190410
  2. REMICADE [Suspect]
     Active Substance: INFLIXIMAB
     Indication: CROHN^S DISEASE
     Dosage: STRENGTH = 100 MG
     Route: 042
     Dates: start: 20171222

REACTIONS (4)
  - Crohn^s disease [Recovered/Resolved]
  - Off label use [Unknown]
  - Drug level below therapeutic [Unknown]
  - Product use issue [Unknown]

NARRATIVE: CASE EVENT DATE: 20190227
